FAERS Safety Report 7460803-6 (Version None)
Quarter: 2011Q2

REPORT INFORMATION
  Report Type: 
  Country: None (occurrence: None)
  Receive Date: 20110505
  Receipt Date: 20110421
  Transmission Date: 20111010
  Serious: No
  Sender: FDA-Public Use
  Company Number: US-B.I. PHARMACEUTICALS,INC./RIDGEFIELD-2011-BP-06107BP

PATIENT
  Age: 83 Year
  Sex: Female

DRUGS (8)
  1. SYNTHROID [Concomitant]
     Indication: THYROID DISORDER
     Dosage: 0.88 MCG
     Route: 048
     Dates: start: 19500101
  2. PRADAXA [Suspect]
     Indication: ATRIAL FIBRILLATION
     Dosage: 300 MG
     Route: 048
     Dates: start: 20110202
  3. MULTIPLE VITAMINS [Concomitant]
  4. BUMETANIDE [Concomitant]
     Indication: FLUID RETENTION
     Dosage: 1 MG
     Route: 048
  5. OCCUVITE [Concomitant]
     Indication: EYE DISORDER
  6. RAMIPRIL [Concomitant]
     Dosage: 5 MG
     Route: 048
  7. METOPROLOL TARTRATE [Concomitant]
     Dosage: 50 MG
     Route: 048
  8. POTASSIUM ER [Concomitant]
     Dosage: 20 MEQ
     Route: 048

REACTIONS (2)
  - DYSURIA [None]
  - ANORECTAL DISCOMFORT [None]
